FAERS Safety Report 6441095-3 (Version None)
Quarter: 2009Q4

REPORT INFORMATION
  Report Type: 
  Country: None (occurrence: None)
  Receive Date: 20091116
  Receipt Date: 20091103
  Transmission Date: 20100525
  Serious: Yes (Hospitalization)
  Sender: FDA-Public Use
  Company Number: US-MYLANLABS-2009S1019187

PATIENT
  Age: 79 Year
  Sex: Female
  Weight: 81.65 kg

DRUGS (12)
  1. FENTANYL CITRATE [Suspect]
     Indication: ARTHRITIS
     Dosage: Q 72 HOURS
     Route: 062
     Dates: start: 20091002, end: 20091004
  2. FLUCONAZOLE [Concomitant]
  3. BENEFIBER FIBER SUPPLEMENT [Concomitant]
  4. GLIPIZIDE [Concomitant]
     Indication: DIABETES MELLITUS
  5. ROPINIROLE [Concomitant]
     Indication: RESTLESS LEGS SYNDROME
  6. ASPIRIN [Concomitant]
  7. ALPRAZOLAM [Concomitant]
  8. LEXAPRO [Concomitant]
     Indication: DEPRESSION
  9. BENAZEPRIL HYDROCHLORIDE [Concomitant]
     Indication: BLOOD PRESSURE
  10. OMEPRAZOLE [Concomitant]
  11. SIMAVASTATIN [Concomitant]
  12. MELOXICAM [Concomitant]

REACTIONS (7)
  - ANURIA [None]
  - DYSSTASIA [None]
  - FEELING ABNORMAL [None]
  - HYPOAESTHESIA [None]
  - INTESTINAL FUNCTIONAL DISORDER [None]
  - MOVEMENT DISORDER [None]
  - SENSORY LOSS [None]
